FAERS Safety Report 5404908-X (Version None)
Quarter: 2007Q3

REPORT INFORMATION
  Report Type: 
  Country: None (occurrence: None)
  Receive Date: 20070801
  Receipt Date: 20070801
  Transmission Date: 20080115
  Serious: Yes (Other)
  Sender: FDA-Public Use
  Company Number: None

PATIENT
  Sex: Female
  Weight: 58.9676 kg

DRUGS (1)
  1. SERTRALINE [Suspect]
     Indication: DEPRESSION
     Dosage: ONE TABLET  DAILY  PO
     Route: 048
     Dates: start: 20070723, end: 20070727

REACTIONS (14)
  - CRYING [None]
  - DEPRESSED MOOD [None]
  - DIZZINESS [None]
  - ENURESIS [None]
  - FEELING COLD [None]
  - GAIT DISTURBANCE [None]
  - HYPERHIDROSIS [None]
  - MIDDLE INSOMNIA [None]
  - NIGHTMARE [None]
  - SCREAMING [None]
  - SLUGGISHNESS [None]
  - SOMNOLENCE [None]
  - THERAPEUTIC RESPONSE UNEXPECTED WITH DRUG SUBSTITUTION [None]
  - TINNITUS [None]
